FAERS Safety Report 11132170 (Version 2)
Quarter: 2016Q2

REPORT INFORMATION
  Report Type: Report from Study
  Country: US (occurrence: US)
  Receive Date: 20150522
  Receipt Date: 20160516
  Transmission Date: 20160815
  Serious: No
  Sender: FDA-Public Use
  Company Number: US-MALLINCKRODT-T201502106

PATIENT
  Sex: Female

DRUGS (3)
  1. REPOSITORY CORTICOTROPIN INJECTION [Suspect]
     Active Substance: CORTICOTROPIN
     Indication: NEPHROTIC SYNDROME
     Dosage: 40 UNITS, TWICE A WEEK
     Route: 058
     Dates: start: 20150408
  2. PLAVIX [Suspect]
     Active Substance: CLOPIDOGREL BISULFATE
     Indication: PRODUCT USED FOR UNKNOWN INDICATION
     Route: 065
  3. LASIX [Concomitant]
     Active Substance: FUROSEMIDE
     Dosage: UNK, QD

REACTIONS (8)
  - Blood pressure increased [Unknown]
  - Weight increased [Unknown]
  - Pharyngeal oedema [Unknown]
  - Hunger [Unknown]
  - Injection site bruising [Unknown]
  - Peripheral swelling [Unknown]
  - Swelling face [Unknown]
  - Injection site pain [Unknown]
